FAERS Safety Report 5289017-5 (Version None)
Quarter: 2007Q2

REPORT INFORMATION
  Report Type: 
  Country: None (occurrence: None)
  Receive Date: 20070405
  Receipt Date: 20070327
  Transmission Date: 20071010
  Serious: Yes (Hospitalization)
  Sender: FDA-Public Use
  Company Number: FR-PFIZER INC-2007024398

PATIENT
  Age: 74 Year
  Sex: Female

DRUGS (4)
  1. CAMPTOSAR [Suspect]
     Route: 042
  2. FLUOROURACIL [Suspect]
     Route: 042
  3. PREVISCAN [Concomitant]
  4. ALDACTONE [Concomitant]

REACTIONS (3)
  - BONE MARROW FAILURE [None]
  - NEUTROPENIA [None]
  - PYREXIA [None]
